FAERS Safety Report 22631806 (Version 1)
Quarter: 2023Q2

REPORT INFORMATION
  Report Type: Report from Study
  Country: US (occurrence: US)
  Receive Date: 20230623
  Receipt Date: 20230623
  Transmission Date: 20230721
  Serious: Yes (Other)
  Sender: FDA-Public Use
  Company Number: US-002147023-NVSC2023US139565

PATIENT
  Sex: Male

DRUGS (2)
  1. CARBOPLATIN [Suspect]
     Active Substance: CARBOPLATIN
     Indication: Product used for unknown indication
     Dosage: UNK
     Route: 065
  2. CISPLATIN [Suspect]
     Active Substance: CISPLATIN
     Indication: Product used for unknown indication
     Dosage: UNK
     Route: 065

REACTIONS (3)
  - Metastatic neoplasm [Not Recovered/Not Resolved]
  - Malignant neoplasm progression [Not Recovered/Not Resolved]
  - Drug intolerance [Unknown]
